FAERS Safety Report 8384664-6 (Version None)
Quarter: 2012Q2

REPORT INFORMATION
  Report Type: 
  Country: None (occurrence: None)
  Receive Date: 20120524
  Receipt Date: 20120515
  Transmission Date: 20120825
  Serious: Yes (Other)
  Sender: FDA-Public Use
  Company Number: US-JNJFOC-20120201910

PATIENT
  Sex: Female
  Weight: 54.3 kg

DRUGS (1)
  1. DOXORUBICIN HCL [Suspect]
     Indication: OVARIAN CANCER RECURRENT
     Route: 042
     Dates: start: 20110301, end: 20110701

REACTIONS (3)
  - MASS [None]
  - NEOPLASM PROGRESSION [None]
  - OVARIAN CANCER RECURRENT [None]
